FAERS Safety Report 15628551 (Version 1)
Quarter: 2018Q4

REPORT INFORMATION
  Report Type: Spontaneous
  Country: FR (occurrence: FR)
  Receive Date: 20181116
  Receipt Date: 20181116
  Transmission Date: 20190205
  Serious: Yes (Hospitalization)
  Sender: FDA-Public Use
  Company Number: FR-OTSUKA-2018_036142

PATIENT
  Age: 55 Year
  Sex: Male

DRUGS (3)
  1. SEROPLEX [Suspect]
     Active Substance: ESCITALOPRAM OXALATE
     Indication: DEPRESSION
     Dosage: UNK
     Route: 048
     Dates: start: 20180925
  2. ABILIFY [Suspect]
     Active Substance: ARIPIPRAZOLE
     Indication: PSYCHOTIC DISORDER
     Dosage: 5 MG, QD
     Route: 048
  3. LEPTICUR [Suspect]
     Active Substance: TROPATEPINE HYDROCHLORIDE
     Indication: EXTRAPYRAMIDAL DISORDER
     Dosage: 1 DF, QD
     Route: 048
     Dates: start: 20180925

REACTIONS (5)
  - Hallucination [Recovering/Resolving]
  - Extrapyramidal disorder [Recovering/Resolving]
  - Product use in unapproved indication [Unknown]
  - Confusional state [Recovering/Resolving]
  - Tremor [Recovering/Resolving]

NARRATIVE: CASE EVENT DATE: 20181025
